FAERS Safety Report 5094933-3 (Version None)
Quarter: 2006Q3

REPORT INFORMATION
  Report Type: 
  Country: None (occurrence: None)
  Receive Date: 20060901
  Receipt Date: 20060717
  Transmission Date: 20061208
  Serious: Yes (Other)
  Sender: FDA-Public Use
  Company Number: US-BAYER-200612996BCC

PATIENT
  Age: 70 Year
  Sex: Female
  Weight: 64 kg

DRUGS (13)
  1. ASPIRIN [Suspect]
     Indication: PROPHYLAXIS
     Route: 048
     Dates: start: 19960101, end: 20060101
  2. ASPIRIN [Suspect]
     Indication: DRUG USE FOR UNKNOWN INDICATION
     Dosage: TOTAL DAILY DOSE: 81 MG  UNIT DOSE: 81 MG
     Route: 048
     Dates: start: 20050701
  3. ORIGINAL ALKA-SELTZER [Suspect]
     Indication: STOMACH DISCOMFORT
     Dosage: UNIT DOSE: 325 MG
     Route: 048
     Dates: start: 19860101
  4. LIPITOR [Concomitant]
  5. FEOSOL [Concomitant]
  6. ENALAPRIL [Concomitant]
  7. ACTOS [Concomitant]
  8. METFORMIN [Concomitant]
  9. GLIPIZIDE [Concomitant]
  10. GNC VITAMINS [Concomitant]
  11. POTASSIUM [Concomitant]
  12. FOLIC ACID [Concomitant]
  13. ALEVE [Concomitant]
     Dosage: TOTAL DAILY DOSE: 880 MG  UNIT DOSE: 220 MG
     Route: 048
     Dates: start: 20040101, end: 20060601

REACTIONS (1)
  - VASODILATATION [None]
